FAERS Safety Report 11734042 (Version 1)
Quarter: 2015Q4

REPORT INFORMATION
  Report Type: Spontaneous
  Country: US (occurrence: None)
  Receive Date: 20151112
  Receipt Date: 20151112
  Transmission Date: 20160304
  Serious: Yes (Other)
  Sender: FDA-Public Use
  Company Number: None

PATIENT
  Age: 65 Year
  Sex: Female
  Weight: 55.79 kg

DRUGS (3)
  1. ESSENTIAL OILS. [Concomitant]
     Active Substance: ESSENTIAL OILS
  2. VOLTAREN [Suspect]
     Active Substance: DICLOFENAC SODIUM
     Indication: ARTHRITIS
     Dosage: APPLIED TO A SURFACE, USUALLY THE SKIN
     Dates: start: 20151105, end: 20151107
  3. DOTERRA VITAMINS [Concomitant]

REACTIONS (8)
  - Abdominal distension [None]
  - Eructation [None]
  - Lethargy [None]
  - Balance disorder [None]
  - Dyspepsia [None]
  - Heart rate decreased [None]
  - Nausea [None]
  - Asthenia [None]

NARRATIVE: CASE EVENT DATE: 20151107
